FAERS Safety Report 14977306 (Version 2)
Quarter: 2018Q2

REPORT INFORMATION
  Report Type: Report from Study
  Country: CN (occurrence: CN)
  Receive Date: 20180606
  Receipt Date: 20180620
  Transmission Date: 20180711
  Serious: Yes (Hospitalization)
  Sender: FDA-Public Use
  Company Number: CN-ROCHE-2128318

PATIENT
  Age: 35 Year
  Sex: Female
  Weight: 67 kg

DRUGS (5)
  1. WUZHI [Concomitant]
     Indication: HEPATIC FAILURE
     Route: 065
     Dates: start: 20180124
  2. URSODEOXYCHOLIC ACID [Concomitant]
     Active Substance: URSODIOL
     Indication: HEPATIC FAILURE
     Route: 065
     Dates: start: 20180124
  3. ZOLEDRONIC ACID [Concomitant]
     Active Substance: ZOLEDRONIC ACID
     Indication: METASTASES TO BONE
     Route: 065
     Dates: start: 20171009
  4. WUZHI [Concomitant]
     Route: 065
     Dates: start: 20180214
  5. TRASTUZUMAB EMTANSINE [Suspect]
     Active Substance: ADO-TRASTUZUMAB EMTANSINE
     Indication: HER-2 POSITIVE BREAST CANCER
     Dosage: MOST RECENT DOSE OF TRASTUZUMAB EMTANSINE 244.8 MG PRIOR TO AE ONSET- ON 10/MAY/2018
     Route: 042
     Dates: start: 20180103

REACTIONS (1)
  - Ovarian cyst [Recovered/Resolved]

NARRATIVE: CASE EVENT DATE: 20180519
